FAERS Safety Report 6847461-6 (Version None)
Quarter: 2010Q3

REPORT INFORMATION
  Report Type: 
  Country: None (occurrence: None)
  Receive Date: 20100716
  Receipt Date: 20100708
  Transmission Date: 20110219
  Serious: Yes (Other)
  Sender: FDA-Public Use
  Company Number: JP-JNJFOC-20100702839

PATIENT

DRUGS (1)
  1. DUROTEP MT [Suspect]
     Indication: CANCER PAIN
     Route: 062

REACTIONS (4)
  - ASTHENIA [None]
  - DELIRIUM [None]
  - DRUG DOSE OMISSION [None]
  - FEELING ABNORMAL [None]
